FAERS Safety Report 21390637 (Version 6)
Quarter: 2023Q1

REPORT INFORMATION
  Report Type: Report from Study
  Country: MY (occurrence: MY)
  Receive Date: 20220929
  Receipt Date: 20230213
  Transmission Date: 20230418
  Serious: Yes (Hospitalization)
  Sender: FDA-Public Use
  Company Number: MY-NOVARTISPH-NVSC2022MY208168

PATIENT
  Age: 51 Year
  Sex: Female
  Weight: 51.2 kg

DRUGS (8)
  1. ALPELISIB [Suspect]
     Active Substance: ALPELISIB
     Indication: Ovarian cancer
     Dosage: 200 MG, QD (DAILY)
     Route: 048
     Dates: start: 20220523, end: 20220911
  2. ALPELISIB [Suspect]
     Active Substance: ALPELISIB
     Dosage: 150 MG, QD (DAILY)
     Route: 048
     Dates: start: 20220915
  3. OLAPARIB [Suspect]
     Active Substance: OLAPARIB
     Indication: Ovarian cancer
     Dosage: 400 MG, BID
     Route: 048
     Dates: start: 20220523, end: 20220911
  4. OLAPARIB [Suspect]
     Active Substance: OLAPARIB
     Dosage: 200 MG, BID (2 TIMES PER DAY)
     Route: 048
     Dates: start: 20220915
  5. SLOW K [Concomitant]
     Active Substance: POTASSIUM CHLORIDE
     Indication: Hypokalaemia
     Dosage: UNK
     Route: 065
     Dates: start: 20220913, end: 20220916
  6. SODIUM CHLORIDE [Concomitant]
     Active Substance: SODIUM CHLORIDE
     Indication: Hyponatraemia
     Dosage: UNK
     Route: 065
     Dates: start: 20220913, end: 20220919
  7. CALCIUM CARBONATE [Concomitant]
     Active Substance: CALCIUM CARBONATE
     Indication: Supplementation therapy
     Dosage: UNK
     Route: 065
     Dates: start: 20220420
  8. CALCITRIOL [Concomitant]
     Active Substance: CALCITRIOL
     Indication: Supplementation therapy
     Dosage: UNK
     Route: 065
     Dates: start: 20220420

REACTIONS (2)
  - Deep vein thrombosis [Not Recovered/Not Resolved]
  - Cellulitis [Recovered/Resolved]

NARRATIVE: CASE EVENT DATE: 20220913
